FAERS Safety Report 21401602 (Version 5)
Quarter: 2023Q2

REPORT INFORMATION
  Report Type: Report from Study
  Country: CN (occurrence: CN)
  Receive Date: 20221003
  Receipt Date: 20230427
  Transmission Date: 20230721
  Serious: Yes (Life-Threatening, Hospitalization)
  Sender: FDA-Public Use
  Company Number: CN-ELI_LILLY_AND_COMPANY-CN202209012694

PATIENT
  Age: 47 Year
  Sex: Female
  Weight: 48.2 kg

DRUGS (6)
  1. GEMCITABINE HYDROCHLORIDE [Suspect]
     Active Substance: GEMCITABINE HYDROCHLORIDE
     Indication: Pancreatic carcinoma
     Dosage: 1000 MG/M2, CONTINUOUS 3 WEEKS GIVEN ON DAY1, 8, 15 AND 1 WEEK OFF PER 28-DAY CYCLE
     Route: 042
     Dates: start: 20220713, end: 20220719
  2. GEMCITABINE HYDROCHLORIDE [Suspect]
     Active Substance: GEMCITABINE HYDROCHLORIDE
     Dosage: 1000 MG/M2, CONTINUOUS 3 WEEKS GIVEN ON DAY1, 8, 15 AND 1 WEEK OFF PER 28-DAY CYCLE
     Route: 042
     Dates: start: 20220720, end: 20220817
  3. APG-1387 [Concomitant]
     Active Substance: APG-1387
     Indication: Pancreatic carcinoma
     Dosage: 45 MG, ON DAY 1, 8, 15, 22 PER 28-DAY CYCLE
     Route: 042
     Dates: start: 20220713, end: 20220817
  4. PACLITAXEL [Concomitant]
     Active Substance: PACLITAXEL
     Indication: Pancreatic carcinoma
     Dosage: 125 MG/M2, CONTINUOUS 3 WEEKS GIVEN ON DAY1, 8, 15 AND 1 WEEK OFF PER 28-DAY CYCLE
     Route: 042
     Dates: start: 20220713, end: 20220719
  5. PACLITAXEL [Concomitant]
     Active Substance: PACLITAXEL
     Dosage: 75 MG/M2, CONTINUOUS 3 WEEKS GIVEN ON DAY1, 8, 15 AND 1 WEEK OFF PER 28-DAY CYCLE
     Route: 042
     Dates: start: 20220720, end: 20220817
  6. PREDNISONE ACETATE [Concomitant]
     Active Substance: PREDNISONE ACETATE
     Indication: Product used for unknown indication
     Dosage: UNK, UNKNOWN
     Route: 065
     Dates: start: 20220906, end: 20220919

REACTIONS (2)
  - Platelet count decreased [Unknown]
  - Hepatic function abnormal [Recovered/Resolved]

NARRATIVE: CASE EVENT DATE: 20220916
